FAERS Safety Report 16761652 (Version 1)
Quarter: 2019Q3

REPORT INFORMATION
  Report Type: Spontaneous
  Country: TR (occurrence: TR)
  Receive Date: 20190830
  Receipt Date: 20190830
  Transmission Date: 20191005
  Serious: Yes (Death, Hospitalization)
  Sender: FDA-Public Use
  Company Number: PHHY2019TR200428

PATIENT
  Age: 63 Year
  Sex: Female

DRUGS (4)
  1. LETROZOLE. [Suspect]
     Active Substance: LETROZOLE
     Indication: INVASIVE DUCTAL BREAST CARCINOMA
     Dosage: 2.5 MG, UNK
     Route: 065
  2. CARBOPLATIN. [Suspect]
     Active Substance: CARBOPLATIN
     Indication: PRODUCT USED FOR UNKNOWN INDICATION
     Dosage: UNK, (6 COURSES)
     Route: 065
  3. TOPOTECAN [Suspect]
     Active Substance: TOPOTECAN HYDROCHLORIDE
     Indication: PRODUCT USED FOR UNKNOWN INDICATION
     Dosage: UNK, (3 COURSES)
     Route: 065
  4. PACLITAXEL. [Suspect]
     Active Substance: PACLITAXEL
     Indication: PRODUCT USED FOR UNKNOWN INDICATION
     Dosage: UNK, (6 COURSES)
     Route: 065

REACTIONS (9)
  - Ovarian granulosa cell tumour [Unknown]
  - Metastases to pelvis [Fatal]
  - Leukopenia [Unknown]
  - Ascites [Fatal]
  - Metastases to lung [Fatal]
  - Metastases to liver [Fatal]
  - Endometrial cancer stage II [Fatal]
  - Metastases to abdominal cavity [Fatal]
  - Second primary malignancy [Unknown]
